FAERS Safety Report 10522794 (Version 2)
Quarter: 2014Q4

REPORT INFORMATION
  Report Type: Spontaneous
  Country: US (occurrence: US)
  Receive Date: 20141016
  Receipt Date: 20141219
  Transmission Date: 20150528
  Serious: Yes (Death, Other)
  Sender: FDA-Public Use
  Company Number: US-MALLINCKRODT-T201403664

PATIENT
  Age: 40 Year
  Sex: Male

DRUGS (3)
  1. AMITRIPTYLINE [Concomitant]
     Active Substance: AMITRIPTYLINE
     Route: 048
  2. GABLOFEN [Suspect]
     Active Substance: BACLOFEN
     Dosage: 130 MCG/DAY
     Route: 037
  3. GABLOFEN [Suspect]
     Active Substance: BACLOFEN
     Indication: MUSCLE SPASTICITY
     Dosage: 50 MCG/DAY
     Route: 037
     Dates: start: 20140904

REACTIONS (5)
  - Thrombosis [Unknown]
  - Fall [Unknown]
  - Muscle spasticity [Recovering/Resolving]
  - Pulmonary embolism [Fatal]
  - Device kink [Recovered/Resolved]

NARRATIVE: CASE EVENT DATE: 201405
